FAERS Safety Report 5481841-9 (Version None)
Quarter: 2007Q4

REPORT INFORMATION
  Report Type: 
  Country: None (occurrence: None)
  Receive Date: 20071010
  Receipt Date: 20070925
  Transmission Date: 20080405
  Serious: No
  Sender: FDA-Public Use
  Company Number: US-BOEHRINGER INGELHEIM PHARMACEUTICALS, INC.-2007-BP-21640BP

PATIENT

DRUGS (2)
  1. CATAPRES-TTS-1 [Suspect]
     Indication: HYPERTENSION
     Route: 061
     Dates: start: 20070924
  2. ASPIRIN [Concomitant]
     Indication: CEREBROVASCULAR ACCIDENT

REACTIONS (1)
  - BLOOD PRESSURE INCREASED [None]
